FAERS Safety Report 7808511-3 (Version None)
Quarter: 2011Q4

REPORT INFORMATION
  Report Type: 
  Country: None (occurrence: None)
  Receive Date: 20111011
  Receipt Date: 20111011
  Transmission Date: 20120403
  Serious: Yes (Hospitalization)
  Sender: FDA-Public Use
  Company Number: None

PATIENT
  Sex: Male
  Weight: 78.3 kg

DRUGS (3)
  1. RITUXIMAB (MOAB C2B8 ANTI CD20, CHIMERIC) [Suspect]
  2. CYCLOPHOSPHAMIDE [Suspect]
     Dosage: 1140 MG
  3. PENTOSTATIN [Suspect]
     Dosage: 7.6 MG

REACTIONS (4)
  - HEPATIC CIRRHOSIS [None]
  - LEUKAEMIC INFILTRATION HEPATIC [None]
  - DRUG INEFFECTIVE [None]
  - BLOOD CREATININE INCREASED [None]
